FAERS Safety Report 9090040 (Version 1)
Quarter: 2013Q1

REPORT INFORMATION
  Report Type: Report from Study
  Country: US (occurrence: US)
  Receive Date: 20130201
  Receipt Date: 20130201
  Transmission Date: 20140127
  Serious: No
  Sender: FDA-Public Use
  Company Number: US-ABBOTT-12P-163-1020461-00

PATIENT
  Age: 51 Year
  Sex: Female

DRUGS (14)
  1. HUMIRA [Suspect]
     Indication: PSORIASIS
     Route: 058
     Dates: start: 201210
  2. ADAPTTINE VITAMIN [Concomitant]
     Indication: DEHYDROEPIANDROSTERONE DECREASED
     Dosage: DAILY
  3. ALIVE ONCE A DAY WOMEN^S OVER 50 VITAMIN [Concomitant]
     Indication: SUPPLEMENTATION THERAPY
     Dosage: DAILY
  4. LIPITOR [Concomitant]
     Indication: BLOOD CHOLESTEROL INCREASED
     Dosage: 40 MG DAILY
  5. CITALOPRAM [Concomitant]
     Indication: PREMENSTRUAL SYNDROME
     Dosage: 10 MG DAILY
  6. DHEA [Concomitant]
     Indication: DEHYDROEPIANDROSTERONE DECREASED
  7. LASIX [Concomitant]
     Indication: FLUID RETENTION
     Dosage: 20 MG DAILY
  8. INTEGRA F [Concomitant]
     Indication: BLOOD IRON DECREASED
  9. METFORMIN [Concomitant]
     Indication: DIABETES MELLITUS
  10. RITALIN [Concomitant]
     Indication: NARCOLEPSY
  11. OMEPRAZOLE [Concomitant]
     Indication: GASTROOESOPHAGEAL REFLUX DISEASE
     Dosage: 20 MG DAILY
  12. PROGESTERONE [Concomitant]
     Indication: PROGESTERONE DECREASED
     Dosage: 50 MG DAILY
  13. TRICOR [Concomitant]
     Indication: BLOOD TRIGLYCERIDES INCREASED
     Dosage: 145 MG DAILY
  14. VIT D3 [Concomitant]
     Indication: VITAMIN D DECREASED
     Dosage: 1000 UNITS DAILY

REACTIONS (2)
  - Incorrect dose administered [Unknown]
  - Injection site haemorrhage [Recovered/Resolved]
